FAERS Safety Report 7946416-8 (Version None)
Quarter: 2011Q4

REPORT INFORMATION
  Report Type: 
  Country: None (occurrence: None)
  Receive Date: 20111129
  Receipt Date: 20111122
  Transmission Date: 20120403
  Serious: Yes (Death, Other)
  Sender: FDA-Public Use
  Company Number: GB-ROCHE-1007797

PATIENT
  Sex: Male
  Weight: 87.5 kg

DRUGS (9)
  1. BACLOFEN [Concomitant]
  2. LYRICA [Concomitant]
  3. HUMULIN M3 [Concomitant]
  4. DIAZEPAM [Concomitant]
  5. LUCENTIS [Suspect]
     Indication: POLYPOIDAL CHOROIDAL VASCULOPATHY
     Route: 050
  6. LISINOPRIL AND HYDROCHLOROTHIAZIDE [Concomitant]
  7. NITROLINGUAL [Concomitant]
  8. PANTOPRAZOLE [Concomitant]
  9. ACETAMINOPHEN AND CODEINE PHOSPHATE [Concomitant]

REACTIONS (8)
  - DIABETIC KETOACIDOSIS [None]
  - PAIN [None]
  - DEATH [None]
  - MYOCARDIAL INFARCTION [None]
  - DIABETIC RETINOPATHY [None]
  - APATHY [None]
  - DIABETES MELLITUS INADEQUATE CONTROL [None]
  - SPINAL OSTEOARTHRITIS [None]
